FAERS Safety Report 12697384 (Version 1)
Quarter: 2016Q3

REPORT INFORMATION
  Report Type: Spontaneous
  Country: US (occurrence: None)
  Receive Date: 20160829
  Receipt Date: 20160829
  Transmission Date: 20161109
  Serious: No
  Sender: FDA-Public Use
  Company Number: None

PATIENT
  Age: 20 Year
  Sex: Female
  Weight: 53.07 kg

DRUGS (1)
  1. NEXPLANON [Suspect]
     Active Substance: ETONOGESTREL

REACTIONS (8)
  - Depression [None]
  - Mood swings [None]
  - Fatigue [None]
  - Abnormal dreams [None]
  - Nervousness [None]
  - Malaise [None]
  - Migraine [None]
  - Appetite disorder [None]

NARRATIVE: CASE EVENT DATE: 20160827
